FAERS Safety Report 21555884 (Version 1)
Quarter: 2022Q4

REPORT INFORMATION
  Report Type: Spontaneous
  Country: US (occurrence: None)
  Receive Date: 20221103
  Receipt Date: 20221103
  Transmission Date: 20230113
  Serious: Yes (Disabling, Other)
  Sender: FDA-Public Use
  Company Number: None

PATIENT
  Age: 67 Year
  Sex: Female

DRUGS (1)
  1. ZOLEDRONIC ACID [Suspect]
     Active Substance: ZOLEDRONIC ACID

REACTIONS (12)
  - Pain [None]
  - Middle insomnia [None]
  - Feeling hot [None]
  - Hyperhidrosis [None]
  - Pain [None]
  - Diarrhoea [None]
  - Loss of consciousness [None]
  - Nausea [None]
  - Vomiting [None]
  - Abdominal pain upper [None]
  - Headache [None]
  - Eye pain [None]

NARRATIVE: CASE EVENT DATE: 20220811
